FAERS Safety Report 9218164 (Version 3)
Quarter: 2013Q2

REPORT INFORMATION
  Report Type: Spontaneous
  Country: US (occurrence: US)
  Receive Date: 20130408
  Receipt Date: 20130624
  Transmission Date: 20140414
  Serious: Yes (Death, Hospitalization, Other)
  Sender: FDA-Public Use
  Company Number: US-TARO-2013P1004214

PATIENT
  Age: 89 Year
  Sex: Female
  Weight: 57.61 kg

DRUGS (1)
  1. WARFARIN SODIUM TABLETS USP 2MG [Suspect]
     Dates: start: 20130222

REACTIONS (15)
  - International normalised ratio increased [Unknown]
  - Cardiac failure chronic [Fatal]
  - Pulmonary oedema [Fatal]
  - Prothrombin time abnormal [Unknown]
  - Cerebrovascular accident [Fatal]
  - Acute myocardial infarction [Fatal]
  - Pleural effusion [Fatal]
  - Pneumonia [Fatal]
  - Mucosal dryness [Unknown]
  - Arrhythmia [Fatal]
  - Skin discolouration [Unknown]
  - Joint range of motion decreased [Unknown]
  - Cardiogenic shock [Fatal]
  - Atrioventricular block [Fatal]
  - Pulse pressure decreased [Unknown]
